FAERS Safety Report 8320039-3 (Version None)
Quarter: 2012Q2

REPORT INFORMATION
  Report Type: 
  Country: None (occurrence: None)
  Receive Date: 20120427
  Receipt Date: 20120423
  Transmission Date: 20120825
  Serious: Yes (Hospitalization, Other)
  Sender: FDA-Public Use
  Company Number: JP-TEVA-2011003388

PATIENT
  Sex: Male
  Weight: 48.2 kg

DRUGS (18)
  1. TREANDA [Suspect]
     Route: 042
     Dates: start: 20110906, end: 20110907
  2. MAGNESIUM OXIDE [Concomitant]
  3. APREPITANT [Concomitant]
     Dates: start: 20110125, end: 20110421
  4. PALONOSETRON HYDROCHLORIDE [Concomitant]
     Dates: start: 20110215, end: 20110420
  5. DEXAMETHASONE [Concomitant]
     Dates: start: 20110215, end: 20110215
  6. BACTRIM [Concomitant]
     Dates: start: 20110127
  7. TREANDA [Suspect]
     Route: 042
     Dates: start: 20120111, end: 20120112
  8. ITRACONAZOLE [Concomitant]
     Dates: start: 20110127
  9. MECOBALAMIN [Concomitant]
  10. TREANDA [Suspect]
     Indication: MANTLE CELL LYMPHOMA
     Route: 042
     Dates: start: 20110125, end: 20110126
  11. TREANDA [Suspect]
     Route: 042
     Dates: start: 20110712, end: 20110713
  12. LOXOPROFEN SODIUM [Concomitant]
  13. TREANDA [Suspect]
     Route: 042
     Dates: start: 20110419, end: 20110420
  14. IODINE [Concomitant]
     Dates: start: 20110127
  15. TREANDA [Suspect]
     Route: 042
     Dates: start: 20110215, end: 20110216
  16. ACYCLOVIR [Concomitant]
     Dates: start: 20110127
  17. FAMOTIDINE [Concomitant]
  18. GRANISETRON HCL [Concomitant]
     Dates: start: 20110125, end: 20110126

REACTIONS (17)
  - HICCUPS [None]
  - VASCULITIS [None]
  - GRANULOCYTE COUNT DECREASED [None]
  - LEUKOPENIA [None]
  - HAEMOGLOBIN DECREASED [None]
  - FEBRILE NEUTROPENIA [None]
  - PLATELET COUNT DECREASED [None]
  - NEUTROPHIL COUNT DECREASED [None]
  - WHITE BLOOD CELL COUNT DECREASED [None]
  - BLOOD ALKALINE PHOSPHATASE INCREASED [None]
  - HYPERKALAEMIA [None]
  - LYMPHOPENIA [None]
  - GAMMA-GLUTAMYLTRANSFERASE INCREASED [None]
  - NEUTROPENIA [None]
  - LYMPHOCYTE COUNT DECREASED [None]
  - NAUSEA [None]
  - C-REACTIVE PROTEIN INCREASED [None]
